FAERS Safety Report 6289875-1 (Version None)
Quarter: 2009Q3

REPORT INFORMATION
  Report Type: 
  Country: None (occurrence: None)
  Receive Date: 20090730
  Receipt Date: 20080903
  Transmission Date: 20100115
  Serious: Yes (Other)
  Sender: FDA-Public Use
  Company Number: US-BRISTOL-MYERS SQUIBB COMPANY-14322952

PATIENT
  Age: 80 Year
  Sex: Male

DRUGS (12)
  1. COUMADIN [Suspect]
     Indication: HEART RATE ABNORMAL
     Route: 048
  2. COUMADIN [Interacting]
     Indication: CARDIAC VALVE DISEASE
     Route: 048
  3. NEURONTIN [Interacting]
     Indication: TOXIC NEUROPATHY
     Dosage: INFORMED ON 19-JUL-2008:400 MG DAILY, (200 MG IN THE MORNING AND 200 MG AT NIGHT),
     Route: 048
     Dates: start: 20080617, end: 20080719
  4. NEURONTIN [Interacting]
     Indication: MYOPATHY TOXIC
     Dosage: INFORMED ON 19-JUL-2008:400 MG DAILY, (200 MG IN THE MORNING AND 200 MG AT NIGHT),
     Route: 048
     Dates: start: 20080617, end: 20080719
  5. ZOCOR [Concomitant]
     Route: 048
  6. ALTACE [Concomitant]
     Route: 048
  7. DYNACIRC [Concomitant]
     Route: 048
  8. FIBERCON [Concomitant]
     Route: 048
  9. INSULIN [Concomitant]
     Dosage: DF=UNITS; 26UNITS IN AM + 8 UNITS IN PM
     Route: 058
  10. LASIX [Concomitant]
     Route: 048
  11. METOPROLOL TARTRATE [Concomitant]
     Route: 048
  12. NEXIUM [Concomitant]
     Route: 048

REACTIONS (17)
  - ANAEMIA [None]
  - ANGIOPATHY [None]
  - APPETITE DISORDER [None]
  - BALANCE DISORDER [None]
  - CONTUSION [None]
  - DRUG INTERACTION [None]
  - DUODENAL ULCER HAEMORRHAGE [None]
  - DYSPNOEA [None]
  - EPISTAXIS [None]
  - ERECTILE DYSFUNCTION [None]
  - FATIGUE [None]
  - HYPOACUSIS [None]
  - INTERNATIONAL NORMALISED RATIO INCREASED [None]
  - OEDEMA PERIPHERAL [None]
  - PUPILS UNEQUAL [None]
  - RASH [None]
  - WEIGHT FLUCTUATION [None]
